FAERS Safety Report 5754064-3 (Version None)
Quarter: 2008Q2

REPORT INFORMATION
  Report Type: 
  Country: None (occurrence: None)
  Receive Date: 20080530
  Receipt Date: 20080522
  Transmission Date: 20081010
  Serious: Yes (Other)
  Sender: FDA-Public Use
  Company Number: PHEH2008US04846

PATIENT
  Sex: Female

DRUGS (1)
  1. FEMARA [Suspect]
     Dosage: 2.5 MG, UNK
     Dates: start: 20080301

REACTIONS (4)
  - ARTHRALGIA [None]
  - SENSATION OF HEAVINESS [None]
  - SURGERY [None]
  - WEIGHT INCREASED [None]
